FAERS Safety Report 6478834-1 (Version None)
Quarter: 2009Q4

REPORT INFORMATION
  Report Type: 
  Country: None (occurrence: None)
  Receive Date: 20091207
  Receipt Date: 20091203
  Transmission Date: 20100525
  Serious: Yes (Hospitalization, Disabling, Other)
  Sender: FDA-Public Use
  Company Number: US-B.I. PHARMACEUTICALS,INC./RIDGEFIELD-2009-BP-14023BP

PATIENT
  Sex: Male

DRUGS (6)
  1. SPIRIVA [Suspect]
     Indication: CHRONIC OBSTRUCTIVE PULMONARY DISEASE
     Dosage: 18 MCG
     Route: 055
     Dates: start: 20080901
  2. METFORMIN HCL [Concomitant]
     Indication: DIABETES MELLITUS
     Dosage: 2000 MG
     Dates: start: 20060101
  3. SIMVASTATIN [Concomitant]
     Indication: BLOOD CHOLESTEROL INCREASED
     Dates: start: 20070101
  4. METOPROLOL [Concomitant]
     Indication: HYPERTENSION
     Dates: start: 20070101
  5. LISINOPRIL [Concomitant]
     Indication: HYPERTENSION
     Dates: start: 20070101
  6. LISINOPRIL [Concomitant]
     Indication: PROSTATOMEGALY

REACTIONS (6)
  - BLINDNESS UNILATERAL [None]
  - EYE DISORDER [None]
  - PROSTATOMEGALY [None]
  - RETINAL ARTERY OCCLUSION [None]
  - URINARY TRACT OBSTRUCTION [None]
  - VISION BLURRED [None]
